FAERS Safety Report 6640160-5 (Version None)
Quarter: 2010Q1

REPORT INFORMATION
  Report Type: 
  Country: None (occurrence: None)
  Receive Date: 20100315
  Receipt Date: 20100304
  Transmission Date: 20100710
  Serious: Yes (Congenital Anomaly)
  Sender: FDA-Public Use
  Company Number: 2010EU000377

PATIENT
  Sex: Female

DRUGS (3)
  1. PROGRAF [Suspect]
     Indication: RENAL TRANSPLANT
     Dosage: 9 MG, /D, TRANSPLACENTAL
     Route: 064
  2. AZATHIOPRINE SODIUM [Suspect]
     Indication: RENAL TRANSPLANT
     Dosage: 100 MG, /D, TRANSPLACENTAL
     Route: 064
  3. TENORMIN [Suspect]
     Indication: DRUG EXPOSURE DURING PREGNANCY
     Dosage: 0.25 MG, /D, TRANSPLACENTAL
     Route: 064

REACTIONS (4)
  - ABORTION INDUCED [None]
  - CONGENITAL BLADDER ANOMALY [None]
  - MATERNAL DRUGS AFFECTING FOETUS [None]
  - NEURODEGENERATIVE DISORDER [None]
